FAERS Safety Report 22601527 (Version 1)
Quarter: 2023Q2

REPORT INFORMATION
  Report Type: Spontaneous
  Country: ES (occurrence: ES)
  Receive Date: 20230614
  Receipt Date: 20230614
  Transmission Date: 20230721
  Serious: Yes (Death, Other)
  Sender: FDA-Public Use
  Company Number: ES-GSK-ES2023GSK082988

PATIENT

DRUGS (1)
  1. SOTROVIMAB [Suspect]
     Active Substance: SOTROVIMAB
     Indication: COVID-19
     Dosage: 500 MG

REACTIONS (4)
  - Pathogen resistance [Unknown]
  - SARS-CoV-2 RNA increased [Fatal]
  - Viral mutation identified [Unknown]
  - Drug resistance [Unknown]
